FAERS Safety Report 7625273-3 (Version None)
Quarter: 2011Q3

REPORT INFORMATION
  Report Type: 
  Country: None (occurrence: None)
  Receive Date: 20110713
  Receipt Date: 20110628
  Transmission Date: 20111222
  Serious: Yes (Life-Threatening, Hospitalization, Other)
  Sender: FDA-Public Use
  Company Number: 2011MA008159

PATIENT
  Age: 42 Year
  Sex: Female
  Weight: 69 kg

DRUGS (1)
  1. PENTOXIFYLLINE [Suspect]
     Indication: INTENTIONAL OVERDOSE
     Dosage: 20 G;

REACTIONS (9)
  - HYPOTENSION [None]
  - METABOLIC ACIDOSIS [None]
  - INTENTIONAL OVERDOSE [None]
  - HAEMODIALYSIS [None]
  - SUICIDAL IDEATION [None]
  - OLIGURIA [None]
  - COMA [None]
  - SHOCK [None]
  - TOXICITY TO VARIOUS AGENTS [None]
